FAERS Safety Report 25943985 (Version 1)
Quarter: 2025Q4

REPORT INFORMATION
  Report Type: Spontaneous
  Country: US (occurrence: US)
  Receive Date: 20251021
  Receipt Date: 20251021
  Transmission Date: 20260117
  Serious: Yes (Other)
  Sender: BIOCON
  Company Number: US-BIOCON-BCN-2025-000308

PATIENT
  Age: 71 Year
  Sex: Female
  Weight: 62.6 kg

DRUGS (5)
  1. EVEROLIMUS [Suspect]
     Active Substance: EVEROLIMUS
     Indication: Brain neoplasm
     Dates: start: 202504, end: 2025
  2. EVEROLIMUS [Suspect]
     Active Substance: EVEROLIMUS
     Dates: start: 2025, end: 2025
  3. EVEROLIMUS [Suspect]
     Active Substance: EVEROLIMUS
     Dates: start: 2025
  4. AMLODIPINE [Concomitant]
     Active Substance: AMLODIPINE BESYLATE
     Indication: Blood pressure measurement
  5. LISINOPRIL [Concomitant]
     Active Substance: LISINOPRIL
     Indication: Blood pressure measurement

REACTIONS (8)
  - Diabetes mellitus [Not Recovered/Not Resolved]
  - Pneumonia [Not Recovered/Not Resolved]
  - Hypophagia [Not Recovered/Not Resolved]
  - Onychomycosis [Not Recovered/Not Resolved]
  - Diarrhoea [Not Recovered/Not Resolved]
  - Nausea [Not Recovered/Not Resolved]
  - Blood cholesterol increased [Not Recovered/Not Resolved]
  - Product use in unapproved indication [Unknown]
